FAERS Safety Report 23201386 (Version 1)
Quarter: 2023Q4

REPORT INFORMATION
  Report Type: Report from Study
  Country: MX (occurrence: MX)
  Receive Date: 20231118
  Receipt Date: 20231118
  Transmission Date: 20240110
  Serious: Yes (Other)
  Sender: FDA-Public Use
  Company Number: MX-002147023-NVSC2023MX243833

PATIENT
  Sex: Female
  Weight: 60 kg

DRUGS (2)
  1. EXFORGE [Suspect]
     Active Substance: AMLODIPINE BESYLATE\VALSARTAN
     Indication: Hypertension
     Dosage: 1 DOSAGE FORM, QD (1X 5/320MG) (STARTED 4 YEARS AGO)
     Route: 048
  2. METICORTEN [Concomitant]
     Active Substance: PREDNISONE
     Indication: Hypoaesthesia
     Dosage: UNK, QD (STARTED 4 YEARS AGO)
     Route: 048

REACTIONS (1)
  - Dermatomyositis [Unknown]
